FAERS Safety Report 5694124-9 (Version None)
Quarter: 2008Q2

REPORT INFORMATION
  Report Type: 
  Country: None (occurrence: None)
  Receive Date: 20080402
  Receipt Date: 20080321
  Transmission Date: 20081010
  Serious: Yes (Other)
  Sender: FDA-Public Use
  Company Number: 2008007138

PATIENT
  Age: 47 Year
  Sex: Male
  Weight: 90.7194 kg

DRUGS (3)
  1. LISTERINE WHITENING PRE-BRUSH RINSE (NO ACTIVE INGREDIENT) [Suspect]
     Indication: DENTAL CARE
     Dosage: DENTAL CARE
     Dates: start: 20080316, end: 20080319
  2. LISTERINE WHITENING QUICK DISSOLVING STRIPS (NO ACTIVE INGREDIENT) [Suspect]
     Indication: DENTAL CARE
     Dosage: 2 STRIPS AT NIGHT DAILY (1 IN 1 D), ORAL
     Route: 048
     Dates: start: 20080316, end: 20080319
  3. ATACAND [Concomitant]

REACTIONS (3)
  - GINGIVAL BLISTER [None]
  - GINGIVAL ERYTHEMA [None]
  - GINGIVAL PAIN [None]
